FAERS Safety Report 21481663 (Version 2)
Quarter: 2023Q1

REPORT INFORMATION
  Report Type: Report from Study
  Country: US (occurrence: US)
  Receive Date: 20221020
  Receipt Date: 20230222
  Transmission Date: 20230418
  Serious: Yes (Other)
  Sender: FDA-Public Use
  Company Number: US-TAKEDA-2022TUS002633

PATIENT
  Sex: Female

DRUGS (1)
  1. HUMAN IMMUNOGLOBULIN G [Suspect]
     Active Substance: HUMAN IMMUNOGLOBULIN G
     Indication: Primary immunodeficiency syndrome
     Dosage: UNK UNK, Q2WEEKS
     Route: 065

REACTIONS (5)
  - Psoriatic arthropathy [Unknown]
  - Depressed mood [Unknown]
  - Sinusitis [Unknown]
  - Bladder discomfort [Unknown]
  - Fatigue [Unknown]
